FAERS Safety Report 8859102 (Version 1)
Quarter: 2012Q4

REPORT INFORMATION
  Report Type: Report from Study
  Country: US (occurrence: US)
  Receive Date: 20121024
  Receipt Date: 20121024
  Transmission Date: 20130627
  Serious: Yes (Hospitalization)
  Sender: FDA-Public Use
  Company Number: US-AMGEN-USACT2012066799

PATIENT
  Age: 41 Year
  Sex: Female
  Weight: 75.74 kg

DRUGS (7)
  1. DENOSUMAB [Suspect]
     Indication: BONE GIANT CELL TUMOUR
     Dosage: 119 mg, qmo
     Route: 058
     Dates: start: 20100128
  2. VILAZODONE [Concomitant]
     Dosage: 20 mg, qd
     Route: 048
  3. ZOLPIDEM [Concomitant]
     Dosage: 5 mg, qd
     Route: 048
  4. FLEXERIL [Concomitant]
     Dosage: 5 mg, bid
     Route: 048
  5. ESTRADIOL [Concomitant]
     Dosage: 1 mg, qd
     Route: 048
  6. OXYCODONE [Concomitant]
     Dosage: 5 mg, qid
     Route: 048
  7. NAPROSYN [Concomitant]
     Dosage: 500 mg, bid

REACTIONS (1)
  - Hip fracture [Not Recovered/Not Resolved]
